FAERS Safety Report 13182335 (Version 5)
Quarter: 2019Q1

REPORT INFORMATION
  Report Type: Spontaneous
  Country: FR (occurrence: FR)
  Receive Date: 20170203
  Receipt Date: 20190227
  Transmission Date: 20190417
  Serious: Yes (Hospitalization, Congenital Anomaly)
  Sender: FDA-Public Use
  Company Number: FR-BIOVITRUM-2017FR0102

PATIENT
  Age: 0 Year
  Sex: Female

DRUGS (1)
  1. KINERET [Suspect]
     Active Substance: ANAKINRA
     Route: 064

REACTIONS (4)
  - Portal shunt [Recovering/Resolving]
  - Patent ductus arteriosus [Recovered/Resolved]
  - Foetal growth restriction [Unknown]
  - Respiratory distress [Recovered/Resolved]

NARRATIVE: CASE EVENT DATE: 20130824
